FAERS Safety Report 19747478 (Version 2)
Quarter: 2021Q3

REPORT INFORMATION
  Report Type: Spontaneous
  Country: US (occurrence: US)
  Receive Date: 20210825
  Receipt Date: 20210907
  Transmission Date: 20211014
  Serious: Yes (Other)
  Sender: FDA-Public Use
  Company Number: US-BAUSCH-BL-2021-021519

PATIENT
  Age: 70 Year
  Sex: Female
  Weight: 77.18 kg

DRUGS (1)
  1. ADVANCED EYE RELIEF/EYE WASH [Suspect]
     Active Substance: WATER
     Indication: EYE IRRIGATION
     Route: 047
     Dates: start: 20210614, end: 20210614

REACTIONS (7)
  - Eye disorder [Recovered/Resolved]
  - Instillation site lacrimation [Recovered/Resolved]
  - Instillation site pain [Recovered/Resolved]
  - Swelling of eyelid [Not Recovered/Not Resolved]
  - Ocular hyperaemia [Recovered/Resolved]
  - Instillation site swelling [Recovered/Resolved]
  - Mydriasis [Recovered/Resolved]

NARRATIVE: CASE EVENT DATE: 20210614
